FAERS Safety Report 24823079 (Version 1)
Quarter: 2025Q1

REPORT INFORMATION
  Report Type: Spontaneous
  Country: QA (occurrence: QA)
  Receive Date: 20250109
  Receipt Date: 20250109
  Transmission Date: 20250408
  Serious: Yes (Life-Threatening, Hospitalization, Other)
  Sender: AMGEN
  Company Number: QA-AMGEN-QATSP2025000650

PATIENT
  Age: 60 Year
  Sex: Male

DRUGS (1)
  1. ADALIMUMAB [Suspect]
     Active Substance: ADALIMUMAB
     Indication: Psoriatic arthropathy
     Route: 065

REACTIONS (3)
  - Ascites [Unknown]
  - Diabetic ketoacidosis [Recovered/Resolved]
  - Bacteraemia [Unknown]
